FAERS Safety Report 5440708-2 (Version None)
Quarter: 2007Q3

REPORT INFORMATION
  Report Type: 
  Country: None (occurrence: None)
  Receive Date: 20070831
  Receipt Date: 20070823
  Transmission Date: 20080115
  Serious: No
  Sender: FDA-Public Use
  Company Number: GB-ABBOTT-07P-167-0377160-00

PATIENT
  Sex: Male
  Weight: 47 kg

DRUGS (5)
  1. ERYTHROMYCIN [Suspect]
     Indication: TOOTH ABSCESS
     Route: 048
     Dates: start: 20070804, end: 20070806
  2. NOVOMIX [Concomitant]
     Indication: TYPE 1 DIABETES MELLITUS
     Route: 058
  3. INSULIN ASPART [Concomitant]
     Indication: TYPE 1 DIABETES MELLITUS
     Route: 058
  4. INSULIN GLARGINE [Concomitant]
     Indication: TYPE 1 DIABETES MELLITUS
     Route: 058
  5. BECLOMETHASONE DIPROPIONATE [Concomitant]
     Indication: ASTHMA
     Route: 055

REACTIONS (1)
  - CHEST PAIN [None]
